FAERS Safety Report 5250379-6 (Version None)
Quarter: 2007Q1

REPORT INFORMATION
  Report Type: 
  Country: None (occurrence: None)
  Receive Date: 20070228
  Receipt Date: 20060329
  Transmission Date: 20070707
  Serious: Yes (Other)
  Sender: FDA-Public Use
  Company Number: US-GLAXOSMITHKLINE-A0600635A

PATIENT
  Age: 17 Year
  Sex: Female

DRUGS (1)
  1. LAMICTAL [Suspect]
     Route: 048

REACTIONS (3)
  - GRAND MAL CONVULSION [None]
  - INFLUENZA [None]
  - PYREXIA [None]
